FAERS Safety Report 11909540 (Version 3)
Quarter: 2016Q1

REPORT INFORMATION
  Report Type: Spontaneous
  Country: DE (occurrence: DE)
  Receive Date: 20160112
  Receipt Date: 20160225
  Transmission Date: 20160526
  Serious: Yes (Other)
  Sender: FDA-Public Use
  Company Number: DE-ROCHE-1692994

PATIENT
  Sex: Male

DRUGS (12)
  1. FURADANTINE [Concomitant]
     Active Substance: NITROFURANTOIN
  2. THYROXINE [Concomitant]
     Active Substance: LEVOTHYROXINE
  3. LUCENTIS [Suspect]
     Active Substance: RANIBIZUMAB
     Indication: RETINAL VEIN OCCLUSION
  4. DOMPERIDONE [Concomitant]
     Active Substance: DOMPERIDONE
  5. MELPERONE [Concomitant]
     Active Substance: MELPERONE
  6. LUCENTIS [Suspect]
     Active Substance: RANIBIZUMAB
     Indication: MACULAR OEDEMA
     Dosage: STRENGTH: 10 MG/ML.?LAST INJECTION WAS GIVEN ON 19/NOV/2015
     Route: 050
     Dates: start: 20150921
  7. STALEVO (UNITED KINGDOM) [Concomitant]
  8. VALSARTAN. [Concomitant]
     Active Substance: VALSARTAN
  9. OXAZEPAM. [Concomitant]
     Active Substance: OXAZEPAM
  10. NEUPRO [Concomitant]
     Active Substance: ROTIGOTINE
  11. PANTOPRAZOLE [Concomitant]
     Active Substance: PANTOPRAZOLE SODIUM
  12. BISOGAMMA [Concomitant]
     Active Substance: BISOPROLOL FUMARATE

REACTIONS (1)
  - Cerebrovascular accident [Recovered/Resolved]

NARRATIVE: CASE EVENT DATE: 20151207
